FAERS Safety Report 9301334 (Version 1)
Quarter: 2013Q2

REPORT INFORMATION
  Report Type: Report from Study
  Country: RO (occurrence: RO)
  Receive Date: 20130521
  Receipt Date: 20130521
  Transmission Date: 20140414
  Serious: Yes (Other)
  Sender: FDA-Public Use
  Company Number: RO-ABBOTT-13X-135-1081201-00

PATIENT
  Age: 22 Year
  Sex: Female

DRUGS (1)
  1. VALPROATE SALT NOT SPECIFIED [Suspect]
     Indication: EPILEPSY

REACTIONS (2)
  - Blood testosterone increased [Unknown]
  - Ovarian cyst [Unknown]
